FAERS Safety Report 5150854-9 (Version None)
Quarter: 2006Q4

REPORT INFORMATION
  Report Type: 
  Country: None (occurrence: None)
  Receive Date: 20061108
  Receipt Date: 20061019
  Transmission Date: 20070319
  Serious: Yes (Death, Hospitalization)
  Sender: FDA-Public Use
  Company Number: 231840

PATIENT
  Age: 67 Year
  Sex: Male

DRUGS (9)
  1. AVASTIN [Suspect]
     Indication: COLORECTAL CANCER
     Dosage: 7.5 MG/KG, Q3W, INTRAVENOUS
     Route: 042
     Dates: start: 20060203
  2. CAPECITABINE (CAPECITABINE) [Suspect]
     Indication: COLORECTAL CANCER
     Dosage: 4600 MG, ORAL
     Route: 048
     Dates: start: 20060203
  3. OXALIPLATIN [Suspect]
     Indication: COLORECTAL CANCER
     Dosage: 130 MG/M2, Q3W, INTRAVENOUS
     Route: 042
     Dates: start: 20060203
  4. ACETAMINOPHEN [Concomitant]
  5. OXAZEPAM [Concomitant]
  6. METOPROLOL TARTRATE [Concomitant]
  7. LANOXIN [Concomitant]
  8. LEVOTHYROXINE SODIUM [Concomitant]
  9. ASCAL (CARBASPIRIN CALCIUM) [Concomitant]

REACTIONS (1)
  - EPILEPSY [None]
